FAERS Safety Report 6371528-2 (Version None)
Quarter: 2009Q3

REPORT INFORMATION
  Report Type: 
  Country: None (occurrence: None)
  Receive Date: 20090923
  Receipt Date: 20080416
  Transmission Date: 20100115
  Serious: Yes (Other)
  Sender: FDA-Public Use
  Company Number: US-ASTRAZENECA-2007UW25114

PATIENT
  Age: 20311 Day
  Sex: Female
  Weight: 83 kg

DRUGS (21)
  1. SEROQUEL [Suspect]
     Indication: DEPRESSION
     Dosage: 100-300 MG
     Route: 048
     Dates: start: 20010101
  2. SEROQUEL [Suspect]
     Route: 048
     Dates: start: 20011001, end: 20061201
  3. ZOCOR [Concomitant]
     Route: 065
  4. BUMEX [Concomitant]
  5. LISINOPRIL [Concomitant]
     Route: 065
  6. VANDAMET [Concomitant]
  7. LASIX [Concomitant]
     Dosage: 40-80 MG
     Route: 065
  8. FLUCONAZOLE [Concomitant]
  9. LANTUS [Concomitant]
  10. MIRTAZAPINE [Concomitant]
  11. TRAZODONE [Concomitant]
     Dosage: 100-150 MG
  12. ZAZOLE [Concomitant]
  13. FOLIC ACID [Concomitant]
     Route: 065
  14. ABILIFY [Concomitant]
  15. VALTREX [Concomitant]
  16. HYDROXYZINE [Concomitant]
  17. PROTONIX [Concomitant]
  18. GEODON [Concomitant]
  19. LIPITOR [Concomitant]
  20. TEMAZEPAM [Concomitant]
  21. SPIRONOLACTONE [Concomitant]
     Dosage: 100-300 MG

REACTIONS (2)
  - DIABETES MELLITUS [None]
  - HYPERGLYCAEMIA [None]
